FAERS Safety Report 5031788-7 (Version None)
Quarter: 2006Q2

REPORT INFORMATION
  Report Type: 
  Country: None (occurrence: None)
  Receive Date: 20060619
  Receipt Date: 20060605
  Transmission Date: 20061013
  Serious: Yes (Hospitalization, Other)
  Sender: FDA-Public Use
  Company Number: HQWYE183204MAY06

PATIENT
  Age: 11 Year
  Sex: Male

DRUGS (9)
  1. CELLCEPT, CONTROL FOR SIROLIMUS [Suspect]
     Indication: PROPHYLAXIS AGAINST TRANSPLANT REJECTION
     Dosage: 750 MG 1 X PER 1 DAY ;750 MG IN AM AND 500 MG IN PM; 1000 MG 1X PER 1 DAY
     Route: 048
     Dates: start: 20041201, end: 20051020
  2. CELLCEPT, CONTROL FOR SIROLIMUS [Suspect]
     Indication: PROPHYLAXIS AGAINST TRANSPLANT REJECTION
     Dosage: 750 MG 1 X PER 1 DAY ;750 MG IN AM AND 500 MG IN PM; 1000 MG 1X PER 1 DAY
     Route: 048
     Dates: start: 20051021, end: 20060115
  3. CELLCEPT, CONTROL FOR SIROLIMUS [Suspect]
     Indication: PROPHYLAXIS AGAINST TRANSPLANT REJECTION
     Dosage: 750 MG 1 X PER 1 DAY ;750 MG IN AM AND 500 MG IN PM; 1000 MG 1X PER 1 DAY
     Route: 048
     Dates: start: 20060116
  4. PREDNISONE (PREDISONE) [Concomitant]
  5. TACROLIMUS (TACROLIMUS) [Concomitant]
  6. CALCITRIOL [Concomitant]
  7. DOCUSATE SODIUM                         (DOCUSATE SODIUM) [Concomitant]
  8. ENALAPRIL MALEATE [Concomitant]
  9. FOLIC ACID [Concomitant]

REACTIONS (2)
  - DEHYDRATION [None]
  - GASTROENTERITIS [None]
